FAERS Safety Report 6071750-9 (Version None)
Quarter: 2009Q1

REPORT INFORMATION
  Report Type: 
  Country: None (occurrence: None)
  Receive Date: 20090205
  Receipt Date: 20090122
  Transmission Date: 20090719
  Serious: Yes (Other)
  Sender: FDA-Public Use
  Company Number: 1000003744

PATIENT
  Age: 45 Year
  Sex: Female
  Weight: 63 kg

DRUGS (4)
  1. CITALOPRAM HYDROBROMIDE [Suspect]
     Indication: PERSONALITY DISORDER
     Dosage: 20 MG (20 MG, 1 IN 1 D), ORAL
     Route: 048
     Dates: start: 20070801, end: 20081222
  2. MYDOCALM [Concomitant]
  3. SERESTA (TABLETS) [Concomitant]
  4. IMPLANON (INJECTION) [Concomitant]

REACTIONS (5)
  - BLOOD MAGNESIUM DECREASED [None]
  - BUNDLE BRANCH BLOCK LEFT [None]
  - LONG QT SYNDROME [None]
  - POST PROCEDURAL COMPLICATION [None]
  - WOLFF-PARKINSON-WHITE SYNDROME [None]
